FAERS Safety Report 23596120 (Version 1)
Quarter: 2024Q1

REPORT INFORMATION
  Report Type: Other
  Country: US (occurrence: None)
  Receive Date: 20240305
  Receipt Date: 20240305
  Transmission Date: 20240410
  Serious: Yes (Other)
  Sender: FDA-Public Use
  Company Number: US-ROCHE-3519940

PATIENT
  Age: 8 Year
  Sex: Female

DRUGS (3)
  1. RITUXIMAB [Suspect]
     Active Substance: RITUXIMAB
     Indication: Congenital musculoskeletal disorder
     Route: 065
  2. CELLCEPT [Suspect]
     Active Substance: MYCOPHENOLATE MOFETIL
     Indication: Congenital musculoskeletal disorder
     Route: 065
  3. RUXOLITINIB [Suspect]
     Active Substance: RUXOLITINIB
     Indication: Congenital musculoskeletal disorder
     Route: 065

REACTIONS (5)
  - Sepsis [Recovered/Resolved]
  - Acute respiratory failure [Unknown]
  - Parainfluenzae virus infection [Unknown]
  - Pneumonia viral [Unknown]
  - Superinfection bacterial [Unknown]
